FAERS Safety Report 5622387-4 (Version None)
Quarter: 2008Q1

REPORT INFORMATION
  Report Type: 
  Country: None (occurrence: None)
  Receive Date: 20080114
  Receipt Date: 20070627
  Transmission Date: 20080703
  Serious: Yes (Other)
  Sender: FDA-Public Use
  Company Number: A03200704312

PATIENT
  Age: 45 Year
  Sex: Male
  Weight: 97.5234 kg

DRUGS (7)
  1. PLAVIX [Suspect]
     Indication: STENT PLACEMENT
     Dosage: 75 MG, QD, ORAL
     Route: 048
     Dates: start: 20061114
  2. ACETYLSALICYLIC ACID SRT [Concomitant]
  3. OLMESARTAN MEDOXOMIL [Concomitant]
  4. METOPROLOL TARTRATE [Concomitant]
  5. ROSUVASTATIN [Concomitant]
  6. METFORMIN HCL [Concomitant]
  7. GLIPIZIDE [Concomitant]

REACTIONS (2)
  - EYE HAEMORRHAGE [None]
  - VISUAL ACUITY REDUCED [None]
